FAERS Safety Report 24867147 (Version 3)
Quarter: 2025Q1

REPORT INFORMATION
  Report Type: Spontaneous
  Country: CN (occurrence: CN)
  Receive Date: 20250121
  Receipt Date: 20250325
  Transmission Date: 20250408
  Serious: Yes (Hospitalization)
  Sender: JIANGSU HANSOH PHARMACEUTICAL
  Company Number: CN-Jiangsu Hansoh Pharmaceutical Co., Ltd-2169455

PATIENT
  Sex: Female

DRUGS (3)
  1. ALMONERTINIB MESYLATE [Suspect]
     Active Substance: ALMONERTINIB MESYLATE
     Indication: Lung adenocarcinoma
  2. PEMETREXED [Suspect]
     Active Substance: PEMETREXED
     Dates: start: 20241128, end: 20241128
  3. CISPLATIN [Suspect]
     Active Substance: CISPLATIN
     Dates: start: 20241128, end: 20241128

REACTIONS (1)
  - Pelvic venous thrombosis [Not Recovered/Not Resolved]
